FAERS Safety Report 6814624-5 (Version None)
Quarter: 2010Q3

REPORT INFORMATION
  Report Type: 
  Country: None (occurrence: None)
  Receive Date: 20100702
  Receipt Date: 20100623
  Transmission Date: 20110219
  Serious: Yes (Other)
  Sender: FDA-Public Use
  Company Number: US-PFIZER INC-2010024809

PATIENT
  Sex: Male
  Weight: 64.399 kg

DRUGS (4)
  1. SUTENT [Suspect]
     Indication: METASTATIC RENAL CELL CARCINOMA
     Dosage: 37.5 MG, DAILY FOR 28 DAYS EVERY 42 DAYS
     Route: 048
     Dates: start: 20090626
  2. SUTENT [Suspect]
     Dosage: 37.5 MG, DAILY
     Route: 048
     Dates: start: 20090301
  3. PLAVIX [Concomitant]
     Indication: CORONARY ARTERIAL STENT INSERTION
     Dosage: UNK
  4. SIMVASTATIN [Concomitant]
     Indication: CORONARY ARTERIAL STENT INSERTION
     Dosage: UNK

REACTIONS (2)
  - HAEMOPTYSIS [None]
  - PARAESTHESIA [None]
